FAERS Safety Report 4885330-1 (Version None)
Quarter: 2006Q1

REPORT INFORMATION
  Report Type: 
  Country: None (occurrence: None)
  Receive Date: 20060119
  Receipt Date: 20060113
  Transmission Date: 20060701
  Serious: Yes (Other)
  Sender: FDA-Public Use
  Company Number: 2006UW00724

PATIENT
  Age: 65 Year
  Sex: Female
  Weight: 45.4 kg

DRUGS (1)
  1. TOPROL-XL [Suspect]
     Indication: HYPERTENSION
     Route: 048
     Dates: start: 20051005

REACTIONS (2)
  - CARDIAC FAILURE CONGESTIVE [None]
  - VENTRICULAR DYSFUNCTION [None]
